FAERS Safety Report 9478366 (Version 3)
Quarter: 2013Q4

REPORT INFORMATION
  Report Type: Report from Study
  Country: US (occurrence: US)
  Receive Date: 20130827
  Receipt Date: 20131101
  Transmission Date: 20140711
  Serious: No
  Sender: FDA-Public Use
  Company Number: US-ASTELLAS-2013EU005750

PATIENT
  Age: 55 Year
  Sex: Male
  Weight: 107.8 kg

DRUGS (42)
  1. BLINDED FIDAXOMICIN [Suspect]
     Indication: PROPHYLAXIS
     Dosage: 1 TABLET, QD
     Route: 048
     Dates: start: 20130322, end: 20130325
  2. MYCAMINE [Suspect]
     Indication: ANTIFUNGAL PROPHYLAXIS
     Dosage: 100-150-MG-Q24HR-DAILY
     Route: 042
     Dates: start: 20130320
  3. PROGRAF [Suspect]
     Indication: PROPHYLAXIS AGAINST TRANSPLANT REJECTION
     Dosage: 0.5-1 MG, QPM
     Route: 048
     Dates: start: 20130408, end: 20130525
  4. LANSOPRAZOLE [Concomitant]
     Indication: PROPHYLAXIS
     Dosage: 30 MG, QD
     Route: 048
     Dates: start: 20130320, end: 20130420
  5. LEVETIRACETAM [Concomitant]
     Indication: PROPHYLAXIS
     Dosage: 500 MG, BID
     Route: 048
     Dates: start: 20130320
  6. URSODIOL [Concomitant]
     Indication: PROPHYLAXIS
     Dosage: 300 MG, BID
     Route: 048
     Dates: start: 20130320
  7. VORICONAZOLE [Concomitant]
     Indication: ANTIFUNGAL PROPHYLAXIS
     Dosage: 400 MG, Q12H
     Route: 048
     Dates: start: 20130320
  8. SULFAMETHOXAZOLE AND TRIMETHOPRIM [Concomitant]
     Indication: ANTIBIOTIC PROPHYLAXIS
     Dosage: 800-80 MG, MWF
     Route: 048
     Dates: start: 20130228
  9. ACETAMINOPHEN [Concomitant]
     Indication: PREMEDICATION
     Dosage: 650 MG, PRN
     Route: 048
     Dates: start: 20130327, end: 20130607
  10. ACYCLOVIR                          /00587301/ [Concomitant]
     Indication: PROPHYLAXIS
     Dosage: 400 MG, BID
     Route: 048
     Dates: start: 20130320, end: 20130331
  11. ACYCLOVIR                          /00587301/ [Concomitant]
     Dosage: 500 MG, Q8H
     Route: 042
     Dates: start: 20130328, end: 20130417
  12. MAGNESIUM SULFATE [Concomitant]
     Indication: PROPHYLAXIS
     Dosage: 4, 2, 8 MG, PRN
     Route: 042
     Dates: start: 20130405, end: 20130407
  13. MAGNESIUM SULFATE [Concomitant]
     Indication: HYPOMAGNESAEMIA
     Dosage: 2,4,8 G,PRN
     Route: 042
     Dates: start: 20130408, end: 20130419
  14. METOPROLOL [Concomitant]
     Indication: HYPERTENSION
     Dosage: 12.5 MG, Q12H
     Route: 048
     Dates: start: 20130323, end: 20130515
  15. INSULIN HUMAN [Concomitant]
     Indication: TYPE 2 DIABETES MELLITUS
     Dosage: 1-35 U, PRN
     Route: 058
     Dates: start: 20130320
  16. CEFEPIME [Concomitant]
     Indication: FEBRILE NEUTROPENIA
     Dosage: 2 G, Q8H
     Route: 042
     Dates: start: 20130323, end: 20130407
  17. CHLORHEXIDINE [Concomitant]
     Indication: PROPHYLAXIS
     Dosage: 0.12-5 ML, QID
     Route: 048
     Dates: start: 20130320, end: 20130420
  18. DEFEROXAMINE [Concomitant]
     Indication: SERUM FERRITIN INCREASED
     Dosage: 2000 MG, PRN
     Route: 042
     Dates: start: 20130320
  19. DEFEROXAMINE [Concomitant]
     Dosage: 1000, 2000-MG-PRN
     Route: 042
     Dates: start: 20130328
  20. DIPHENHYDRAMINE [Concomitant]
     Indication: PRURITUS
     Dosage: 25 MG, PRN
     Route: 048
     Dates: start: 20130320
  21. DIPHENHYDRAMINE [Concomitant]
     Indication: PREMEDICATION
     Dosage: 25 MG, Q6H
     Route: 048
     Dates: start: 20130322, end: 20130327
  22. FENTANYL [Concomitant]
     Indication: SEDATIVE THERAPY
     Dosage: 100-MCG, SINGLE
     Route: 042
     Dates: start: 20130410, end: 20130410
  23. FILGRASTIM [Concomitant]
     Dosage: 480 ?G, QD
     Route: 058
     Dates: start: 20130328, end: 20130406
  24. FILGRASTIM [Concomitant]
     Dosage: 480 ?G, QD
     Route: 058
     Dates: start: 20130409, end: 20130409
  25. FUROSEMIDE [Concomitant]
     Indication: WEIGHT INCREASED
     Dosage: 20 MG, SINGLE
     Route: 042
     Dates: start: 20130329, end: 20130329
  26. GENTAMICIN [Concomitant]
     Indication: FEBRILE NEUTROPENIA
     Dosage: 106.5 MG, SINGLE
     Route: 042
     Dates: start: 20130327, end: 20130327
  27. IMMUNOGLOBULIN                     /00025201/ [Concomitant]
     Indication: INFECTION REACTIVATION
     Dosage: 20 G, Q12H
     Route: 042
     Dates: start: 20130410, end: 20130410
  28. LORAZEPAM [Concomitant]
     Indication: CHEMOTHERAPY
     Dosage: 1-MG-Q24HR
     Route: 048
     Dates: start: 20130321, end: 20130413
  29. LORAZEPAM [Concomitant]
     Indication: PROPHYLAXIS
     Dosage: 1 MG, SINGLE
     Route: 042
     Dates: start: 20130327, end: 20130327
  30. METHOTREXATE [Concomitant]
     Indication: PROPHYLAXIS AGAINST GRAFT VERSUS HOST DISEASE
     Dosage: 11-MG-DAY +1, 3, 6 AND 11 POST-SCT
     Route: 042
     Dates: start: 20130328, end: 20130407
  31. METHYLPREDNISOLONE [Concomitant]
     Indication: PROPHYLAXIS
     Dosage: 10-213 MG, QD
     Route: 042
     Dates: start: 20130322, end: 20130419
  32. METRONIDAZOLE [Concomitant]
     Indication: CLOSTRIDIUM DIFFICILE COLITIS
     Dosage: 500 MG, Q8H
     Route: 048
     Dates: start: 20130324, end: 20130420
  33. MIDAZOLAM [Concomitant]
     Indication: PREMEDICATION
     Dosage: 4 MG, SINGLE
     Route: 042
     Dates: start: 20130410, end: 20130410
  34. BACTROBAN [Concomitant]
     Indication: ANTIBIOTIC PROPHYLAXIS
     Dosage: 1-APP, BID
     Route: 045
     Dates: start: 20130331
  35. ONDANSETRON [Concomitant]
     Indication: PROPHYLAXIS OF NAUSEA AND VOMITING
     Dosage: 4-8 MG, Q8H
     Route: 042
     Dates: start: 20130402, end: 20130417
  36. VANCOMYCIN [Concomitant]
     Indication: FEBRILE NEUTROPENIA
     Dosage: 0.1-1.5 G, Q12H
     Route: 042
     Dates: start: 20130323, end: 20130402
  37. INSULIN H NPH [Concomitant]
     Indication: TYPE 2 DIABETES MELLITUS
     Dosage: 8-60 U, QHS
     Route: 058
     Dates: start: 20130321, end: 20130419
  38. OXYCODONE [Concomitant]
     Indication: BONE PAIN
     Dosage: 5-10 MG, Q4H
     Route: 048
     Dates: start: 20130406, end: 20130419
  39. ACETAMINOPHEN W/OXYCODONE [Concomitant]
     Indication: SINUS HEADACHE
     Dosage: 1-TABLET, PRN
     Route: 048
     Dates: start: 20130331, end: 20130331
  40. PROMETHAZINE [Concomitant]
     Indication: NAUSEA
     Dosage: 12.5 MG, Q6H
     Route: 042
     Dates: start: 20130330, end: 20130402
  41. PROMETHAZINE [Concomitant]
     Indication: VOMITING
  42. MAGNESIUM SULPHATE [Concomitant]
     Indication: PROPHYLAXIS
     Dosage: 2-8-G-PRN
     Route: 042
     Dates: start: 20130323, end: 20130404

REACTIONS (1)
  - No adverse event [Recovered/Resolved]
